FAERS Safety Report 18414517 (Version 1)
Quarter: 2020Q4

REPORT INFORMATION
  Report Type: Spontaneous
  Country: US (occurrence: US)
  Receive Date: 20201021
  Receipt Date: 20201021
  Transmission Date: 20210114
  Serious: Yes (Other)
  Sender: FDA-Public Use
  Company Number: None

PATIENT
  Age: 37 Year
  Sex: Female
  Weight: 90 kg

DRUGS (5)
  1. VITAMIN B [Concomitant]
     Active Substance: VITAMIN B
  2. MULTI-VITAMIN (WOMENS) [Concomitant]
  3. TYLENOL [Concomitant]
     Active Substance: ACETAMINOPHEN
  4. VICKS SINEX SEVERE [Suspect]
     Active Substance: OXYMETAZOLINE HYDROCHLORIDE
     Indication: NASAL CONGESTION
     Dates: start: 20200113, end: 20200501
  5. IBUPROFEN 600 [Concomitant]
     Active Substance: IBUPROFEN

REACTIONS (7)
  - Anxiety [None]
  - Panic attack [None]
  - Nervousness [None]
  - Dizziness [None]
  - Dissociation [None]
  - Vertigo [None]
  - Derealisation [None]

NARRATIVE: CASE EVENT DATE: 20200502
